FAERS Safety Report 6927619-8 (Version None)
Quarter: 2010Q3

REPORT INFORMATION
  Report Type: 
  Country: None (occurrence: None)
  Receive Date: 20100817
  Receipt Date: 20100802
  Transmission Date: 20110219
  Serious: Yes (Other)
  Sender: FDA-Public Use
  Company Number: PHHY2010CA41188

PATIENT
  Sex: Female

DRUGS (3)
  1. ACLASTA [Suspect]
     Indication: OSTEOPOROSIS POSTMENOPAUSAL
     Dosage: 5MG/100ML, ONCE A YEAR
     Route: 042
     Dates: start: 20080522
  2. FORTEO [Concomitant]
     Dosage: UNK
     Dates: start: 20050901, end: 20070401
  3. EVISTA [Concomitant]
     Dosage: 60 MG, ONCE DAILY
     Dates: start: 20071101, end: 20081101

REACTIONS (5)
  - HEADACHE [None]
  - HERPES ZOSTER [None]
  - SKIN LESION [None]
  - VERTIGO LABYRINTHINE [None]
  - VIRAL LABYRINTHITIS [None]
